FAERS Safety Report 25681638 (Version 1)
Quarter: 2025Q3

REPORT INFORMATION
  Report Type: Report from Study
  Country: US (occurrence: US)
  Receive Date: 20250814
  Receipt Date: 20250814
  Transmission Date: 20251020
  Serious: Yes (Other)
  Sender: ABBVIE
  Company Number: US-ABBVIE-6411667

PATIENT
  Age: 78 Year
  Sex: Male

DRUGS (1)
  1. CREON [Suspect]
     Active Substance: PANCRELIPASE AMYLASE\PANCRELIPASE LIPASE\PANCRELIPASE PROTEASE
     Indication: Pancreatic failure
     Route: 048
     Dates: start: 20240801, end: 20250806

REACTIONS (4)
  - Cataract [Recovered/Resolved]
  - Asthenopia [Unknown]
  - Diarrhoea [Not Recovered/Not Resolved]
  - Product dispensing error [Unknown]

NARRATIVE: CASE EVENT DATE: 20240101
